FAERS Safety Report 6151860-8 (Version None)
Quarter: 2009Q2

REPORT INFORMATION
  Report Type: 
  Country: None (occurrence: None)
  Receive Date: 20090410
  Receipt Date: 20090409
  Transmission Date: 20091009
  Serious: Yes (Other)
  Sender: FDA-Public Use
  Company Number: IE-PFIZER INC-2008058059

PATIENT

DRUGS (7)
  1. CHAMPIX [Suspect]
     Indication: SMOKING CESSATION THERAPY
     Route: 048
     Dates: start: 20080301, end: 20080525
  2. CARDICOR [Concomitant]
     Route: 048
     Dates: start: 20030101
  3. TRITACE [Concomitant]
     Route: 048
     Dates: start: 20030101
  4. LASIX [Concomitant]
     Route: 048
     Dates: start: 20030101
  5. PANTOPRAZOLE SODIUM [Concomitant]
     Route: 048
     Dates: start: 20030101
  6. NORTEM [Concomitant]
     Route: 048
     Dates: start: 20030101
  7. LEXAPRO [Concomitant]
     Route: 048
     Dates: start: 20050101

REACTIONS (4)
  - DEPRESSED MOOD [None]
  - IRRITABILITY [None]
  - MOOD SWINGS [None]
  - OROPHARYNGEAL PAIN [None]
